FAERS Safety Report 12610364 (Version 1)
Quarter: 2016Q3

REPORT INFORMATION
  Report Type: Spontaneous
  Country: US (occurrence: None)
  Receive Date: 20160729
  Receipt Date: 20160729
  Transmission Date: 20161109
  Serious: Yes (Disabling)
  Sender: FDA-Public Use
  Company Number: None

PATIENT
  Sex: Male

DRUGS (4)
  1. ZOCOR [Suspect]
     Active Substance: SIMVASTATIN
     Indication: DIABETES MELLITUS
     Dosage: MULTIPLE ONE DAILY PO
     Route: 048
  2. ZOCOR [Suspect]
     Active Substance: SIMVASTATIN
     Indication: HYPERLIPIDAEMIA
     Dosage: MULTIPLE ONE DAILY PO
     Route: 048
  3. ZOCOR [Suspect]
     Active Substance: SIMVASTATIN
     Indication: METABOLIC SYNDROME
     Dosage: MULTIPLE ONE DAILY PO
     Route: 048
  4. ZOCOR [Suspect]
     Active Substance: SIMVASTATIN
     Indication: CORONARY ARTERY DISEASE
     Dosage: MULTIPLE ONE DAILY PO
     Route: 048

REACTIONS (7)
  - Oesophagitis [None]
  - Otitis media [None]
  - Rhinitis [None]
  - Conjunctivitis [None]
  - Fatigue [None]
  - Headache [None]
  - Cough [None]
